FAERS Safety Report 14670070 (Version 1)
Quarter: 2018Q1

REPORT INFORMATION
  Report Type: Report from Study
  Country: US (occurrence: US)
  Receive Date: 20180322
  Receipt Date: 20180322
  Transmission Date: 20180509
  Serious: Yes (Hospitalization, Disabling, Other)
  Sender: FDA-Public Use
  Company Number: US-GILEAD-2018-0325972

PATIENT
  Age: 71 Year
  Sex: Female

DRUGS (4)
  1. TOBRAMYCIN. [Suspect]
     Active Substance: TOBRAMYCIN
     Indication: PSEUDOMONAS INFECTION
  2. TOBRAMYCIN. [Suspect]
     Active Substance: TOBRAMYCIN
     Indication: BRONCHIECTASIS
     Dosage: TWICE DAILY FOR 15 MONTHS
     Route: 065
  3. AZTREONAM LYSINE [Suspect]
     Active Substance: AZTREONAM LYSINE
     Indication: BRONCHIECTASIS
     Dosage: 75 MG, UNK
     Route: 055
  4. AZTREONAM LYSINE [Suspect]
     Active Substance: AZTREONAM LYSINE
     Indication: PSEUDOMONAS INFECTION

REACTIONS (7)
  - Pneumonia [Unknown]
  - Bronchiectasis [Not Recovered/Not Resolved]
  - Asthma [Unknown]
  - Off label use [Not Recovered/Not Resolved]
  - Chronic obstructive pulmonary disease [Not Recovered/Not Resolved]
  - Deafness [Not Recovered/Not Resolved]
  - Pseudomonas infection [Not Recovered/Not Resolved]
